FAERS Safety Report 5981159-1 (Version None)
Quarter: 2008Q4

REPORT INFORMATION
  Report Type: 
  Country: None (occurrence: None)
  Receive Date: 20081205
  Receipt Date: 20081203
  Transmission Date: 20090506
  Serious: Yes (Hospitalization)
  Sender: FDA-Public Use
  Company Number: A0758544A

PATIENT
  Age: 79 Year
  Sex: Female

DRUGS (3)
  1. BACTROBAN [Suspect]
     Indication: SKIN INFECTION
     Route: 061
     Dates: start: 20081124
  2. CEPHALEXIN [Concomitant]
  3. BLOOD PRESSURE MEDICATION [Concomitant]

REACTIONS (5)
  - APPLICATION SITE BLEEDING [None]
  - DRUG INEFFECTIVE [None]
  - PAIN OF SKIN [None]
  - SKIN INFECTION [None]
  - SKIN SWELLING [None]
